FAERS Safety Report 23083015 (Version 3)
Quarter: 2024Q2

REPORT INFORMATION
  Report Type: Spontaneous
  Country: JP (occurrence: JP)
  Receive Date: 20231019
  Receipt Date: 20240429
  Transmission Date: 20240716
  Serious: No
  Sender: FDA-Public Use
  Company Number: JP-PFIZER INC-202300312548

PATIENT
  Age: 64 Year
  Sex: Female

DRUGS (1)
  1. ENBREL [Suspect]
     Active Substance: BENZYL ALCOHOL\ETANERCEPT
     Indication: Rheumatoid arthritis
     Dosage: 50 MG, ONCE A WEEK
     Route: 058

REACTIONS (3)
  - Injection site pain [Recovering/Resolving]
  - Device issue [Unknown]
  - Device difficult to use [Unknown]

NARRATIVE: CASE EVENT DATE: 20230914
